FAERS Safety Report 11584901 (Version 1)
Quarter: 2015Q4

REPORT INFORMATION
  Report Type: Spontaneous
  Country: IN (occurrence: IN)
  Receive Date: 20151001
  Receipt Date: 20151001
  Transmission Date: 20160304
  Serious: Yes (Death, Life-Threatening, Hospitalization)
  Sender: FDA-Public Use
  Company Number: IN-ELI_LILLY_AND_COMPANY-IN201509009441

PATIENT
  Age: 30 Year
  Sex: Female

DRUGS (1)
  1. INSULIN LISPRO [Suspect]
     Active Substance: INSULIN LISPRO
     Indication: PRODUCT USED FOR UNKNOWN INDICATION
     Dosage: UNK, UNKNOWN
     Route: 042

REACTIONS (7)
  - Blood glucose decreased [Unknown]
  - Heart rate decreased [Unknown]
  - Unresponsive to stimuli [Unknown]
  - Incorrect route of drug administration [Unknown]
  - Foaming at mouth [Unknown]
  - Completed suicide [Fatal]
  - Intentional overdose [Fatal]
